FAERS Safety Report 21680752 (Version 1)
Quarter: 2022Q4

REPORT INFORMATION
  Report Type: Spontaneous
  Country: US (occurrence: US)
  Receive Date: 20221205
  Receipt Date: 20221205
  Transmission Date: 20230113
  Serious: No
  Sender: FDA-Public Use
  Company Number: US-009507513-2211USA005692

PATIENT
  Sex: Male

DRUGS (1)
  1. TEMODAR [Suspect]
     Active Substance: TEMOZOLOMIDE
     Indication: Glioma
     Dosage: 200 MILLIGRAM/SQ. METER ORALLY DAILY DURING DAYS 1 - 5 EVERY 28 DAYS
     Route: 048

REACTIONS (1)
  - Product use in unapproved indication [Unknown]
